FAERS Safety Report 20049366 (Version 1)
Quarter: 2021Q4

REPORT INFORMATION
  Report Type: Spontaneous
  Country: CA (occurrence: CA)
  Receive Date: 20211109
  Receipt Date: 20211109
  Transmission Date: 20220303
  Serious: Yes (Life-Threatening)
  Sender: FDA-Public Use
  Company Number: CA-TEVA-2021-CA-1973744

PATIENT
  Age: 8 Month
  Sex: Male
  Weight: 11 kg

DRUGS (27)
  1. FLUDARABINE [Suspect]
     Active Substance: FLUDARABINE PHOSPHATE
     Indication: Donor organ tissue preparation issue
     Route: 042
  2. BUSULFAN [Suspect]
     Active Substance: BUSULFAN
     Indication: Donor organ tissue preparation issue
     Route: 042
  3. BUSULFAN [Suspect]
     Active Substance: BUSULFAN
     Route: 042
  4. BUSULFAN [Suspect]
     Active Substance: BUSULFAN
     Route: 042
  5. MYCOPHENOLATE MOFETIL [Concomitant]
     Active Substance: MYCOPHENOLATE MOFETIL
  6. ACYCLOVIR [Concomitant]
     Active Substance: ACYCLOVIR
  7. AMLODIPINE [Concomitant]
     Active Substance: AMLODIPINE BESYLATE
     Route: 065
  8. CETIRIZINE [Concomitant]
     Active Substance: CETIRIZINE HYDROCHLORIDE
  9. CHOLECALCIFEROL [Concomitant]
     Active Substance: CHOLECALCIFEROL
  10. CYCLOSPORINE [Concomitant]
     Active Substance: CYCLOSPORINE
  11. DEXAMETHASONE [Concomitant]
     Active Substance: DEXAMETHASONE
  12. DEXMEDETOMIDINE [Concomitant]
     Active Substance: DEXMEDETOMIDINE
  13. FAMOTIDINE [Concomitant]
     Active Substance: FAMOTIDINE
  14. FLUCONAZOLE [Concomitant]
     Active Substance: FLUCONAZOLE
  15. FUROSEMIDE [Concomitant]
     Active Substance: FUROSEMIDE
  16. HYDROXYZINE [Concomitant]
     Active Substance: HYDROXYZINE HYDROCHLORIDE
  17. LANSOPRAZOLE [Concomitant]
     Active Substance: LANSOPRAZOLE
  18. LEVETIRACETAM [Concomitant]
     Active Substance: LEVETIRACETAM
     Route: 065
  19. LORAZEPAM [Concomitant]
     Active Substance: LORAZEPAM
  20. MAGNESIUM [Concomitant]
     Active Substance: MAGNESIUM
  21. MELATONIN [Concomitant]
     Active Substance: MELATONIN
  22. METHYLPREDNISOLONE [Concomitant]
     Active Substance: METHYLPREDNISOLONE
  23. ONDANSETRON [Concomitant]
     Active Substance: ONDANSETRON
  24. PREDNISONE [Concomitant]
     Active Substance: PREDNISONE
  25. SYNAGIS [Concomitant]
     Active Substance: PALIVIZUMAB
  26. SULFAMETHOXAZOLE\TRIMETHOPRIM [Concomitant]
     Active Substance: SULFAMETHOXAZOLE\TRIMETHOPRIM
  27. VALACYCLOVIR [Concomitant]
     Active Substance: VALACYCLOVIR HYDROCHLORIDE

REACTIONS (3)
  - Aplastic anaemia [Recovered/Resolved]
  - Febrile neutropenia [Recovered/Resolved]
  - Stomatitis [Recovered/Resolved]
